FAERS Safety Report 8290658 (Version 2)
Quarter: 2013Q2

REPORT INFORMATION
  Report Type: Spontaneous
  Country: US (occurrence: None)
  Receive Date: 20111121
  Receipt Date: 20130517
  Transmission Date: 20140414
  Serious: No
  Sender: FDA-Public Use
  Company Number: 1000023972

PATIENT
  Age: 54 Year
  Sex: Female

DRUGS (4)
  1. VIIBRYD [Suspect]
     Indication: DEPRESSION
     Dosage: 10 MG (10 MG, 1 IN 1 D), ORAL 20 MG (20 MG, 1 IN 1 D), ORAL
     Route: 048
     Dates: start: 20110908, end: 20110914
  2. VIIBRYD [Suspect]
     Indication: ANXIETY
     Dosage: 10 MG (10 MG, 1 IN 1 D), ORAL 20 MG (20 MG, 1 IN 1 D), ORAL
     Route: 048
     Dates: start: 20110908, end: 20110914
  3. SYNTHROID (LEVOTHYROXINE SODIUM) [Concomitant]
  4. VIVELLE-DOT (ESTRADIOL) (POULTICE OR PATCH) (ESTRADIOL) [Concomitant]

REACTIONS (4)
  - DIARRHOEA [None]
  - Restlessness [None]
  - Drug ineffective [None]
  - Dizziness [None]
